FAERS Safety Report 24809410 (Version 1)
Quarter: 2025Q1

REPORT INFORMATION
  Report Type: Spontaneous
  Country: US (occurrence: None)
  Receive Date: 20250103
  Receipt Date: 20250103
  Transmission Date: 20250409
  Serious: Yes (Death, Hospitalization)
  Sender: FDA-CTU
  Company Number: None

PATIENT
  Age: 72 Year
  Sex: Female

DRUGS (14)
  1. ADEMPAS [Suspect]
     Active Substance: RIOCIGUAT
     Indication: Pulmonary arterial hypertension
     Dosage: 2MG TID ORAL
     Route: 048
     Dates: start: 20190110, end: 20241211
  2. APIXABAN [Concomitant]
     Active Substance: APIXABAN
  3. DIGOXIN [Concomitant]
     Active Substance: DIGOXIN
  4. BISOPROLOL [Concomitant]
     Active Substance: BISOPROLOL
  5. WIXELA INHUB [Concomitant]
     Active Substance: FLUTICASONE PROPIONATE\SALMETEROL XINAFOATE
  6. ALBUTEROL SULFATE [Concomitant]
     Active Substance: ALBUTEROL SULFATE
  7. ATORVASTATIN [Concomitant]
     Active Substance: ATORVASTATIN
  8. FUROSEMIDE [Concomitant]
     Active Substance: FUROSEMIDE
  9. POTASSIUM CHLORIDE [Concomitant]
     Active Substance: POTASSIUM CHLORIDE
  10. PREDNISONE [Concomitant]
     Active Substance: PREDNISONE
  11. DUOBNEB [Concomitant]
  12. BETAMETHASONE TOP GEL [Concomitant]
  13. OMEGA-3 FATTY ACIDS [Concomitant]
     Active Substance: OMEGA-3 FATTY ACIDS
  14. ASCORBIC ACID [Concomitant]
     Active Substance: ASCORBIC ACID

REACTIONS (4)
  - Confusional state [None]
  - Pneumonia aspiration [None]
  - Cardiac failure [None]
  - Condition aggravated [None]

NARRATIVE: CASE EVENT DATE: 20241116
